FAERS Safety Report 7285420-2 (Version None)
Quarter: 2011Q1

REPORT INFORMATION
  Report Type: 
  Country: None (occurrence: None)
  Receive Date: 20110121
  Receipt Date: 20060816
  Transmission Date: 20110831
  Serious: No
  Sender: FDA-Public Use
  Company Number: 065

PATIENT
  Sex: Female
  Weight: 125.6464 kg

DRUGS (8)
  1. RISPERDAL [Concomitant]
  2. LISINOPRIL [Concomitant]
  3. GLYBURIDE [Concomitant]
  4. WELLBUTRIN [Concomitant]
  5. LEXAPRO [Concomitant]
  6. GEODON [Concomitant]
  7. FAZACLO ODT [Suspect]
     Indication: SCHIZOPHRENIA, PARANOID TYPE
     Dosage: 400 MG PO DAILY
     Route: 048
     Dates: start: 20060802, end: 20060809
  8. GLUCOPHAGE [Concomitant]

REACTIONS (2)
  - NAUSEA [None]
  - VOMITING [None]
